FAERS Safety Report 6020160-9 (Version None)
Quarter: 2008Q4

REPORT INFORMATION
  Report Type: 
  Country: None (occurrence: None)
  Receive Date: 20081226
  Receipt Date: 20081124
  Transmission Date: 20090506
  Serious: No
  Sender: FDA-Public Use
  Company Number: US-BAYER-200839431NA

PATIENT
  Age: 55 Year
  Weight: 75 kg

DRUGS (4)
  1. ULTRAVIST 370 [Suspect]
     Indication: COMPUTERISED TOMOGRAM ABDOMEN
     Dosage: TOTAL DAILY DOSE: 120 ML  UNIT DOSE: 500 ML
     Route: 042
     Dates: start: 20081124, end: 20081124
  2. ACCOLATE [Concomitant]
  3. ADVAIR DISKUS 250/50 [Concomitant]
  4. LOVASTATIN [Concomitant]

REACTIONS (1)
  - URTICARIA [None]
